FAERS Safety Report 9844938 (Version 2)
Quarter: 2014Q2

REPORT INFORMATION
  Report Type: Spontaneous
  Country: DE (occurrence: None)
  Receive Date: 20140122
  Receipt Date: 20140424
  Transmission Date: 20141212
  Serious: Yes (Death)
  Sender: FDA-Public Use
  Company Number: DEP_01851_2014

PATIENT
  Sex: 0

DRUGS (1)
  1. PECFENT [Suspect]
     Indication: PRODUCT USED FOR UNKNOWN INDICATION
     Dosage: 100 MCG/1 BOTTLE.

REACTIONS (1)
  - Overdose [None]
